FAERS Safety Report 5323525-3 (Version None)
Quarter: 2007Q2

REPORT INFORMATION
  Report Type: 
  Country: None (occurrence: None)
  Receive Date: 20070510
  Receipt Date: 20070510
  Transmission Date: 20071010
  Serious: Yes (Hospitalization, Disabling)
  Sender: FDA-Public Use
  Company Number: None

PATIENT
  Age: 66 Year
  Sex: Female

DRUGS (2)
  1. PHOSPHOSODA FLAVOR NOT SPECIFIED [Suspect]
     Indication: COLONOSCOPY
     Dosage: 45 ML;X1;PO
     Route: 048
     Dates: start: 20060719, end: 20060720
  2. PREMARIN [Concomitant]

REACTIONS (4)
  - FEELING COLD [None]
  - GAIT DISTURBANCE [None]
  - RENAL IMPAIRMENT [None]
  - SENSATION OF HEAVINESS [None]
